FAERS Safety Report 24403701 (Version 1)
Quarter: 2024Q4

REPORT INFORMATION
  Report Type: Report from Study
  Country: CL (occurrence: CL)
  Receive Date: 20241007
  Receipt Date: 20241007
  Transmission Date: 20250114
  Serious: No
  Sender: ROCHE
  Company Number: CL-ROCHE-3468658

PATIENT
  Sex: Female
  Weight: 65.0 kg

DRUGS (1)
  1. GAZYVA [Suspect]
     Active Substance: OBINUTUZUMAB
     Indication: Follicular lymphoma
     Dosage: MAINTENANCE
     Route: 042
     Dates: start: 20230530

REACTIONS (4)
  - Lymphadenopathy [Recovered/Resolved]
  - Paranasal sinus mucosal hypertrophy [Unknown]
  - Lymphadenopathy [Unknown]
  - Cyst [Unknown]

NARRATIVE: CASE EVENT DATE: 20231101
